FAERS Safety Report 8044300 (Version 2)
Quarter: 2012Q4

REPORT INFORMATION
  Report Type: 
  Country: US (occurrence: US)
  Receive Date: 20110719
  Receipt Date: 20120924
  Transmission Date: 20130627
  Serious: No
  Sender: FDA-Public Use
  Company Number: US-US-EMD SERONO, INC.-7070542

PATIENT
  Age: 55 None
  Sex: Male

DRUGS (3)
  1. REBIF [Suspect]
     Indication: MULTIPLE SCLEROSIS
     Route: 058
     Dates: start: 20110412
  2. IBUPROFEN [Concomitant]
     Indication: PREMEDICATION
  3. TEGRETOL [Concomitant]
     Indication: ATAXIA

REACTIONS (2)
  - Hypoaesthesia [Recovered/Resolved]
  - Fatigue [Recovering/Resolving]
